FAERS Safety Report 4507500-4 (Version None)
Quarter: 2004Q4

REPORT INFORMATION
  Report Type: 
  Country: None (occurrence: None)
  Receive Date: 20041123
  Receipt Date: 20041112
  Transmission Date: 20050328
  Serious: Yes (Hospitalization)
  Sender: FDA-Public Use
  Company Number: US-JNJFOC-20041103576

PATIENT
  Sex: Female
  Weight: 61.24 kg

DRUGS (18)
  1. INFLIXIMAB [Suspect]
     Indication: RHEUMATOID ARTHRITIS
     Route: 042
  2. VASOTEC [Concomitant]
  3. BEXTRA [Concomitant]
  4. PREDNISONE [Concomitant]
     Dosage: 2.5-5 MG
  5. ACTONEL [Concomitant]
  6. ZOCOR [Concomitant]
  7. ULTRAM [Concomitant]
     Dosage: 50-100 MG
  8. HUMIRA [Concomitant]
  9. METHOTREXATE [Concomitant]
  10. CALCIUM D [Concomitant]
  11. CALCIUM D [Concomitant]
  12. CALCIUM D [Concomitant]
  13. VITAMIN B COMPLEX CAP [Concomitant]
  14. VITAMIN B COMPLEX CAP [Concomitant]
  15. VITAMIN B COMPLEX CAP [Concomitant]
  16. VITAMIN B COMPLEX CAP [Concomitant]
  17. VITAMIN B COMPLEX CAP [Concomitant]
  18. VITAMIN C [Concomitant]

REACTIONS (6)
  - ASEPTIC NECROSIS BONE [None]
  - BACTERAEMIA [None]
  - HIP ARTHROPLASTY [None]
  - IMPLANT SITE INFECTION [None]
  - STAPHYLOCOCCAL BACTERAEMIA [None]
  - STAPHYLOCOCCAL INFECTION [None]
